FAERS Safety Report 21245349 (Version 1)
Quarter: 2022Q3

REPORT INFORMATION
  Report Type: Report from Study
  Country: US (occurrence: US)
  Receive Date: 20220823
  Receipt Date: 20220823
  Transmission Date: 20221027
  Serious: Yes (Hospitalization)
  Sender: FDA-Public Use
  Company Number: US-BIOGEN-2022BI01148546

PATIENT
  Age: 42 Year
  Sex: Female

DRUGS (1)
  1. VUMERITY [Suspect]
     Active Substance: DIROXIMEL FUMARATE
     Indication: Multiple sclerosis
     Dosage: 231 MG 1 CAPSULE TWICE DAILY FOR 7 DAYS, THEN 2 CAPSULES TWICE DAILY THEREAFTER
     Route: 050
     Dates: start: 20220813, end: 20220814

REACTIONS (8)
  - Multiple sclerosis relapse [Unknown]
  - Blindness [Unknown]
  - Face injury [Unknown]
  - Dyspnoea [Unknown]
  - Gait inability [Unknown]
  - Nausea [Unknown]
  - Vomiting [Unknown]
  - Rash [Unknown]

NARRATIVE: CASE EVENT DATE: 20220801
